FAERS Safety Report 10765937 (Version 3)
Quarter: 2015Q1

REPORT INFORMATION
  Report Type: Spontaneous
  Country: US (occurrence: US)
  Receive Date: 20150205
  Receipt Date: 20150205
  Transmission Date: 20150721
  Serious: No
  Sender: FDA-Public Use
  Company Number: US-BRISTOL-MYERS SQUIBB COMPANY-BMS-2014-006421

PATIENT
  Sex: Male

DRUGS (3)
  1. MEGACE [Suspect]
     Active Substance: MEGESTROL ACETATE
  2. MEGACE [Suspect]
     Active Substance: MEGESTROL ACETATE
  3. MEGESTROL ACETATE. [Suspect]
     Active Substance: MEGESTROL ACETATE
     Indication: DECREASED APPETITE
     Route: 065

REACTIONS (5)
  - Fatigue [Unknown]
  - Drug ineffective [Unknown]
  - Hypotension [Unknown]
  - Stomatitis [Unknown]
  - Weight decreased [Unknown]
